FAERS Safety Report 8854226 (Version 1)
Quarter: 2012Q4

REPORT INFORMATION
  Report Type: Spontaneous
  Country: US (occurrence: None)
  Receive Date: 20121019
  Receipt Date: 20121019
  Transmission Date: 20130627
  Serious: Yes (Hospitalization)
  Sender: FDA-Public Use
  Company Number: None

PATIENT
  Age: 35 Year
  Sex: Female
  Weight: 73 kg

DRUGS (4)
  1. LINEZOLID [Suspect]
     Indication: ABSCESS
     Route: 048
     Dates: start: 20120921, end: 20121001
  2. LINEZOLID [Suspect]
     Route: 048
     Dates: start: 20120921, end: 20121001
  3. LINEZOLID [Suspect]
     Indication: ABSCESS
     Route: 042
     Dates: start: 20121001, end: 20121002
  4. LINEZOLID [Suspect]
     Route: 042
     Dates: start: 20121001, end: 20121002

REACTIONS (1)
  - Pancreatitis [None]
